FAERS Safety Report 4784675-3 (Version None)
Quarter: 2005Q3

REPORT INFORMATION
  Report Type: 
  Country: None (occurrence: None)
  Receive Date: 20050928
  Receipt Date: 20050913
  Transmission Date: 20060218
  Serious: Yes (Other)
  Sender: FDA-Public Use
  Company Number: 217473

PATIENT
  Age: 15 Year
  Sex: Female

DRUGS (2)
  1. NUTROPIN AQ [Suspect]
     Dosage: 1.9 MG, SUBCUTANEOUS
     Route: 058
     Dates: start: 20030512, end: 20050810
  2. DDAVP (DESMOPRESSIN ACETATE) [Concomitant]

REACTIONS (2)
  - BRAIN NEOPLASM [None]
  - GERM CELL CANCER [None]
